FAERS Safety Report 11727465 (Version 2)
Quarter: 2016Q1

REPORT INFORMATION
  Report Type: Spontaneous
  Country: US (occurrence: US)
  Receive Date: 20151112
  Receipt Date: 20160129
  Transmission Date: 20160525
  Serious: Yes (Hospitalization, Other)
  Sender: FDA-Public Use
  Company Number: US-BAYER-2015-465071

PATIENT
  Age: 30 Year
  Sex: Female
  Weight: 72.56 kg

DRUGS (3)
  1. CLONAZEPAM. [Concomitant]
     Active Substance: CLONAZEPAM
     Indication: DEPRESSION
     Dosage: UNK
     Dates: start: 2010
  2. CLONAZEPAM. [Concomitant]
     Active Substance: CLONAZEPAM
     Indication: ANXIETY
  3. MIRENA [Suspect]
     Active Substance: LEVONORGESTREL
     Indication: MENORRHAGIA
     Dosage: 20 MCG/24HR, CONT
     Route: 015
     Dates: start: 20100923, end: 20141216

REACTIONS (7)
  - Uterine perforation [None]
  - Back pain [Not Recovered/Not Resolved]
  - Abortion spontaneous [None]
  - Abdominal pain upper [None]
  - Drug ineffective [None]
  - Pelvic pain [None]
  - Pregnancy with contraceptive device [None]

NARRATIVE: CASE EVENT DATE: 20140429
